FAERS Safety Report 6521841-0 (Version None)
Quarter: 2009Q4

REPORT INFORMATION
  Report Type: 
  Country: None (occurrence: None)
  Receive Date: 20091230
  Receipt Date: 20091225
  Transmission Date: 20100525
  Serious: Yes (Hospitalization)
  Sender: FDA-Public Use
  Company Number: JP-B.I. PHARMACEUTICALS,INC./RIDGEFIELD-2009-BP-13954NB

PATIENT
  Sex: Female
  Weight: 47 kg

DRUGS (9)
  1. MOBIC [Suspect]
     Indication: NECK PAIN
     Dosage: 10 MG
     Route: 048
     Dates: end: 20081011
  2. TEGRETOL [Suspect]
     Route: 048
     Dates: end: 20080901
  3. AMPLIT [Concomitant]
     Route: 048
     Dates: end: 20080901
  4. DOGMATYL [Concomitant]
     Dates: end: 20080901
  5. AMOBAN [Concomitant]
     Indication: INSOMNIA
     Dosage: 7.5 MG
     Route: 048
  6. RIBALL [Concomitant]
     Indication: GOUT
     Dosage: 200 MG
     Route: 048
     Dates: end: 20091011
  7. TAKEPRON [Concomitant]
     Indication: GASTRIC ULCER
     Dosage: 15 MG
     Route: 048
  8. NORVASC [Concomitant]
     Indication: HYPERTENSION
     Dosage: 5 MG
     Route: 048
  9. RUEFRIEN [Concomitant]
     Indication: GASTRITIS
     Dosage: 1.5 G
     Route: 048

REACTIONS (2)
  - DRUG RASH WITH EOSINOPHILIA AND SYSTEMIC SYMPTOMS [None]
  - RENAL IMPAIRMENT [None]
